FAERS Safety Report 8479790-7 (Version None)
Quarter: 2012Q2

REPORT INFORMATION
  Report Type: 
  Country: None (occurrence: None)
  Receive Date: 20120629
  Receipt Date: 20120620
  Transmission Date: 20120825
  Serious: Yes (Other)
  Sender: FDA-Public Use
  Company Number: US-ABBOTT-12P-163-0948315-00

PATIENT
  Sex: Male

DRUGS (1)
  1. HUMIRA [Suspect]
     Indication: CROHN'S DISEASE
     Route: 058
     Dates: start: 20110922

REACTIONS (5)
  - SINUSITIS [None]
  - BACK INJURY [None]
  - IMPAIRED HEALING [None]
  - PRECANCEROUS CELLS PRESENT [None]
  - BRONCHITIS [None]
